FAERS Safety Report 19802554 (Version 1)
Quarter: 2021Q3

REPORT INFORMATION
  Report Type: Spontaneous
  Country: US (occurrence: US)
  Receive Date: 20210908
  Receipt Date: 20210908
  Transmission Date: 20211014
  Serious: Yes (Other)
  Sender: FDA-Public Use
  Company Number: US-TOPROL-2021000147

PATIENT
  Age: 72 Year
  Sex: Male
  Weight: 79.4 kg

DRUGS (13)
  1. ALPRAZOLAM. [Concomitant]
     Active Substance: ALPRAZOLAM
     Dosage: AT NIGHT SOMETIMES
     Route: 065
  2. FENOFIBRATE. [Concomitant]
     Active Substance: FENOFIBRATE
     Dosage: DURING THE DAY
     Route: 065
  3. TAMSULOSIN [Concomitant]
     Active Substance: TAMSULOSIN
     Route: 065
  4. SYNTHROID [Concomitant]
     Active Substance: LEVOTHYROXINE SODIUM
     Route: 065
  5. LITHIUM CARBONATE. [Concomitant]
     Active Substance: LITHIUM CARBONATE
     Dosage: AT NIGHT
     Route: 065
  6. METOPROLOL SUCCINATE. [Suspect]
     Active Substance: METOPROLOL SUCCINATE
     Route: 048
     Dates: start: 202101
  7. FINASTERIDE. [Concomitant]
     Active Substance: FINASTERIDE
     Dosage: AT NIGHT
     Route: 065
  8. OMEPRAZOLE. [Concomitant]
     Active Substance: OMEPRAZOLE
     Route: 065
  9. CALCIUM SUPPLEMENT [Concomitant]
     Active Substance: CALCIUM
     Route: 065
  10. SEROQUEL XR [Suspect]
     Active Substance: QUETIAPINE FUMARATE
     Dosage: AT NIGHT
     Route: 048
  11. XANAX [Concomitant]
     Active Substance: ALPRAZOLAM
     Route: 065
  12. D3 SUPPLEMENT [Concomitant]
     Route: 065
  13. PRAVACOL [Concomitant]
     Active Substance: PRAVASTATIN SODIUM
     Route: 065

REACTIONS (4)
  - Palpitations [Not Recovered/Not Resolved]
  - Drug interaction [Not Recovered/Not Resolved]
  - Insomnia [Not Recovered/Not Resolved]
  - Fatigue [Not Recovered/Not Resolved]

NARRATIVE: CASE EVENT DATE: 202101
